FAERS Safety Report 12335751 (Version 1)
Quarter: 2016Q2

REPORT INFORMATION
  Report Type: Report from Study
  Country: FR (occurrence: FR)
  Receive Date: 20160505
  Receipt Date: 20160505
  Transmission Date: 20160815
  Serious: Yes (Other)
  Sender: FDA-Public Use
  Company Number: FR-ROCHE-1700264

PATIENT

DRUGS (34)
  1. METHOTREXATE [Suspect]
     Active Substance: METHOTREXATE
     Indication: METASTATIC NEOPLASM
     Route: 065
  2. RALTITREXED [Suspect]
     Active Substance: RALTITREXED
     Indication: METASTATIC NEOPLASM
     Route: 065
  3. CISPLATIN. [Suspect]
     Active Substance: CISPLATIN
     Indication: METASTATIC NEOPLASM
     Route: 065
  4. LAPATINIB [Suspect]
     Active Substance: LAPATINIB
     Indication: METASTATIC NEOPLASM
     Route: 048
  5. VINORELBINE [Suspect]
     Active Substance: VINORELBINE\VINORELBINE TARTRATE
     Indication: METASTATIC NEOPLASM
     Route: 065
  6. FLUOROURACIL. [Suspect]
     Active Substance: FLUOROURACIL
     Indication: METASTATIC NEOPLASM
     Route: 065
  7. IMATINIB [Suspect]
     Active Substance: IMATINIB
     Indication: METASTATIC NEOPLASM
     Route: 048
  8. DOCETAXEL. [Suspect]
     Active Substance: DOCETAXEL
     Indication: METASTATIC NEOPLASM
     Route: 065
  9. PEMETREXED [Suspect]
     Active Substance: PEMETREXED
     Indication: METASTATIC NEOPLASM
     Route: 065
  10. FOLINIC ACID [Suspect]
     Active Substance: LEUCOVORIN
     Indication: METASTATIC NEOPLASM
     Route: 065
  11. CAPECITABINE. [Suspect]
     Active Substance: CAPECITABINE
     Indication: METASTATIC NEOPLASM
     Route: 065
  12. EVEROLIMUS [Suspect]
     Active Substance: EVEROLIMUS
     Indication: METASTATIC NEOPLASM
     Route: 048
  13. SORAFENIB [Suspect]
     Active Substance: SORAFENIB
     Indication: METASTATIC NEOPLASM
     Route: 048
  14. IRINOTECAN [Suspect]
     Active Substance: IRINOTECAN
     Indication: METASTATIC NEOPLASM
     Route: 065
  15. DASATINIB [Suspect]
     Active Substance: DASATINIB
     Indication: METASTATIC NEOPLASM
     Route: 048
  16. GEMCITABINE [Suspect]
     Active Substance: GEMCITABINE\GEMCITABINE HYDROCHLORIDE
     Indication: METASTATIC NEOPLASM
     Route: 065
  17. DACARBAZINE. [Suspect]
     Active Substance: DACARBAZINE
     Indication: METASTATIC NEOPLASM
     Route: 065
  18. MITOMYCINE [Suspect]
     Active Substance: MITOMYCIN
     Indication: METASTATIC NEOPLASM
     Route: 065
  19. VEMURAFENIB [Suspect]
     Active Substance: VEMURAFENIB
     Indication: METASTATIC NEOPLASM
     Route: 048
  20. TRASTUZUMAB [Suspect]
     Active Substance: TRASTUZUMAB
     Indication: METASTATIC NEOPLASM
     Route: 042
  21. LETROZOLE. [Suspect]
     Active Substance: LETROZOLE
     Indication: METASTATIC NEOPLASM
     Route: 048
  22. ABIRATERONE [Suspect]
     Active Substance: ABIRATERONE
     Indication: METASTATIC NEOPLASM
     Route: 048
  23. TOPOTECAN [Suspect]
     Active Substance: TOPOTECAN\TOPOTECAN HYDROCHLORIDE
     Indication: METASTATIC NEOPLASM
     Route: 065
  24. TRASTUZUMAB [Suspect]
     Active Substance: TRASTUZUMAB
     Route: 042
  25. ETOPOSIDE. [Suspect]
     Active Substance: ETOPOSIDE
     Indication: METASTATIC NEOPLASM
     Route: 065
  26. ERLOTINIB [Suspect]
     Active Substance: ERLOTINIB
     Indication: METASTATIC NEOPLASM
     Route: 048
  27. TAMOXIFEN [Suspect]
     Active Substance: TAMOXIFEN
     Indication: METASTATIC NEOPLASM
     Route: 048
  28. CYCLOPHOSPHAMIDE. [Suspect]
     Active Substance: CYCLOPHOSPHAMIDE
     Indication: METASTATIC NEOPLASM
     Route: 065
  29. PACLITAXEL. [Suspect]
     Active Substance: PACLITAXEL
     Indication: METASTATIC NEOPLASM
     Route: 065
  30. ERIBULINE [Suspect]
     Active Substance: ERIBULIN
     Indication: METASTATIC NEOPLASM
     Route: 065
  31. CARBOPLATIN. [Suspect]
     Active Substance: CARBOPLATIN
     Indication: METASTATIC NEOPLASM
     Route: 065
  32. TEMOZOLOMIDE. [Suspect]
     Active Substance: TEMOZOLOMIDE
     Indication: METASTATIC NEOPLASM
     Route: 065
  33. OXALIPLATIN. [Suspect]
     Active Substance: OXALIPLATIN
     Indication: METASTATIC NEOPLASM
     Route: 065
  34. VINCRISTINE [Suspect]
     Active Substance: VINCRISTINE
     Indication: METASTATIC NEOPLASM
     Route: 065

REACTIONS (19)
  - Aspartate aminotransferase increased [Unknown]
  - Febrile neutropenia [Unknown]
  - Skin reaction [Unknown]
  - Neutropenia [Unknown]
  - Anaemia [Unknown]
  - Nausea [Unknown]
  - Constipation [Unknown]
  - Blood creatinine increased [Unknown]
  - Abdominal pain [Unknown]
  - Thrombocytopenia [Unknown]
  - Neuropathy peripheral [Unknown]
  - Mucosal inflammation [Unknown]
  - Myocardial ischaemia [Unknown]
  - Arrhythmia [Unknown]
  - Decreased appetite [Unknown]
  - Asthenia [Unknown]
  - Arthralgia [Unknown]
  - Vomiting [Unknown]
  - Dyspnoea [Unknown]
